FAERS Safety Report 8432350-6 (Version None)
Quarter: 2012Q2

REPORT INFORMATION
  Report Type: 
  Country: None (occurrence: None)
  Receive Date: 20120613
  Receipt Date: 20120611
  Transmission Date: 20120825
  Serious: Yes (Hospitalization, Other)
  Sender: FDA-Public Use
  Company Number: PHEH2011US05341

PATIENT
  Sex: Female

DRUGS (1)
  1. AREDIA [Suspect]
     Indication: BREAST CANCER METASTATIC

REACTIONS (7)
  - BACK PAIN [None]
  - SPONDYLOLISTHESIS [None]
  - NEPHROLITHIASIS [None]
  - ATELECTASIS [None]
  - MUSCULAR WEAKNESS [None]
  - METASTASES TO BONE [None]
  - LUNG NEOPLASM [None]
